FAERS Safety Report 6383640-2 (Version None)
Quarter: 2009Q3

REPORT INFORMATION
  Report Type: 
  Country: None (occurrence: None)
  Receive Date: 20090929
  Receipt Date: 20090929
  Transmission Date: 20100115
  Serious: Yes (Hospitalization)
  Sender: FDA-Public Use
  Company Number: None

PATIENT
  Sex: Female
  Weight: 74 kg

DRUGS (2)
  1. TEMOZOLOMIDE [Suspect]
     Indication: ACUTE MYELOID LEUKAEMIA
     Dosage: 100 MG/M2 QG PO; 200 MG/M2
     Route: 048
     Dates: start: 20090902, end: 20090915
  2. TEMOZOLOMIDE [Suspect]
     Indication: ACUTE MYELOID LEUKAEMIA
     Dosage: 100 MG/M2 QG PO; 200 MG/M2
     Route: 048
     Dates: start: 20090916, end: 20090922

REACTIONS (2)
  - FEBRILE NEUTROPENIA [None]
  - RASH GENERALISED [None]
